FAERS Safety Report 6671853-1 (Version None)
Quarter: 2010Q2

REPORT INFORMATION
  Report Type: 
  Country: None (occurrence: None)
  Receive Date: 20100407
  Receipt Date: 20100401
  Transmission Date: 20101027
  Serious: Yes (Hospitalization)
  Sender: FDA-Public Use
  Company Number: US-GILEAD-2010-0028176

PATIENT
  Sex: Male

DRUGS (10)
  1. LETAIRIS [Suspect]
     Indication: PULMONARY ARTERIAL HYPERTENSION
     Route: 048
     Dates: start: 20091116
  2. LASIX [Concomitant]
     Indication: OEDEMA
  3. SPIRONOLACTONE [Concomitant]
     Indication: HYPERTENSION
  4. ZOCOR [Concomitant]
     Indication: BLOOD CHOLESTEROL INCREASED
  5. COMBIVENT [Concomitant]
     Indication: EMPHYSEMA
  6. LAMICTAL CD [Concomitant]
  7. NEXIUM [Concomitant]
     Indication: GASTROOESOPHAGEAL REFLUX DISEASE
  8. URSODIOL [Concomitant]
  9. SYNTHROID [Concomitant]
     Indication: HYPOTHYROIDISM
  10. CENTRUM SILVER [Concomitant]

REACTIONS (2)
  - COUGH [None]
  - DYSPNOEA [None]
